FAERS Safety Report 13561050 (Version 3)
Quarter: 2017Q2

REPORT INFORMATION
  Report Type: Spontaneous
  Country: IT (occurrence: IT)
  Receive Date: 20170518
  Receipt Date: 20170531
  Transmission Date: 20170830
  Serious: Yes (Other)
  Sender: FDA-Public Use
  Company Number: IT-ROCHE-1936151

PATIENT
  Age: 85 Year
  Sex: Female
  Weight: 38 kg

DRUGS (4)
  1. HERCEPTIN [Suspect]
     Active Substance: TRASTUZUMAB
     Indication: NEOPLASM PROGRESSION
     Route: 042
     Dates: start: 20160927
  2. LUVION (ITALY) [Concomitant]
  3. PERJETA [Suspect]
     Active Substance: PERTUZUMAB
     Indication: NEOPLASM PROGRESSION
     Route: 042
     Dates: start: 20160927
  4. CARVEDILOL. [Concomitant]
     Active Substance: CARVEDILOL

REACTIONS (4)
  - Dizziness [Not Recovered/Not Resolved]
  - Neutropenia [Unknown]
  - Conjunctivitis [Recovering/Resolving]
  - Dry skin [Unknown]

NARRATIVE: CASE EVENT DATE: 20161129
